FAERS Safety Report 6690952-1 (Version None)
Quarter: 2010Q2

REPORT INFORMATION
  Report Type: 
  Country: None (occurrence: None)
  Receive Date: 20100421
  Receipt Date: 20100414
  Transmission Date: 20101027
  Serious: Yes (Hospitalization, Other)
  Sender: FDA-Public Use
  Company Number: CA-ABBOTT-10P-028-0638836-00

PATIENT
  Sex: Male

DRUGS (5)
  1. HUMIRA [Suspect]
     Indication: CROHN'S DISEASE
     Route: 058
     Dates: start: 20100205, end: 20100312
  2. HUMIRA [Suspect]
     Route: 058
     Dates: start: 20100405
  3. PREDNISONE TAB [Concomitant]
     Indication: INFLAMMATION
     Dosage: DAILY DOSE: 25 MG
     Route: 048
  4. PURINETHOL [Concomitant]
     Indication: CROHN'S DISEASE
     Dosage: DAILY DOSE: 125MG
     Route: 048
  5. OXYCONTIN [Concomitant]
     Indication: PAIN
     Route: 048

REACTIONS (1)
  - INTESTINAL OBSTRUCTION [None]
